FAERS Safety Report 5853118-0 (Version None)
Quarter: 2008Q3

REPORT INFORMATION
  Report Type: 
  Country: None (occurrence: None)
  Receive Date: 20080818
  Receipt Date: 20080610
  Transmission Date: 20090109
  Serious: No
  Sender: FDA-Public Use
  Company Number: WAES 0806USA01927

PATIENT
  Age: 84 Year
  Sex: Male

DRUGS (9)
  1. JANUVIA [Suspect]
     Indication: DIABETES MELLITUS
     Dosage: 100 MG DAILY PO; 50 MG DAILY PO
     Route: 048
     Dates: start: 20080510, end: 20080101
  2. JANUVIA [Suspect]
     Indication: DIABETES MELLITUS
     Dosage: 100 MG DAILY PO; 50 MG DAILY PO
     Route: 048
     Dates: start: 20080101
  3. CASODEX [Concomitant]
  4. COZAAR [Concomitant]
  5. LASIX [Concomitant]
  6. PRANDIN [Concomitant]
  7. ASPIRIN [Concomitant]
  8. SIMVASTATIN [Concomitant]
  9. VITAMINS (UNSPECIFIED) [Concomitant]

REACTIONS (1)
  - BLOOD CREATININE INCREASED [None]
